FAERS Safety Report 19944473 (Version 1)
Quarter: 2021Q4

REPORT INFORMATION
  Report Type: 
  Country: US (occurrence: US)
  Receive Date: 20211011
  Receipt Date: 20211011
  Transmission Date: 20220303
  Serious: No
  Sender: FDA-Public Use
  Company Number: US-C B FLEET CO INC-202105-US-001686

PATIENT
  Sex: Female

DRUGS (1)
  1. MONISTAT 7 COMBINATION PACK [Suspect]
     Active Substance: MICONAZOLE NITRATE
     Indication: Fungal infection
     Dosage: USED 4 APPLICATIONS AND EXTERNAL CREAM
     Dates: start: 20210506

REACTIONS (3)
  - Condition aggravated [Recovering/Resolving]
  - Diarrhoea [Not Recovered/Not Resolved]
  - Exposure during pregnancy [None]
